FAERS Safety Report 4690160-X (Version None)
Quarter: 2005Q2

REPORT INFORMATION
  Report Type: 
  Country: None (occurrence: None)
  Receive Date: 20050613
  Receipt Date: 20050606
  Transmission Date: 20051028
  Serious: Yes (Life-Threatening, Other)
  Sender: FDA-Public Use
  Company Number: 2005EU001142

PATIENT
  Age: 62 Year
  Sex: Female

DRUGS (1)
  1. PROTOPIC [Suspect]
     Indication: LICHENIFICATION
     Dosage: 0.10% TOPICAL
     Route: 061
     Dates: start: 20020501, end: 20050401

REACTIONS (2)
  - SQUAMOUS CELL CARCINOMA [None]
  - TONGUE NEOPLASM MALIGNANT STAGE UNSPECIFIED [None]
